FAERS Safety Report 6029924-9 (Version None)
Quarter: 2008Q4

REPORT INFORMATION
  Report Type: 
  Country: None (occurrence: None)
  Receive Date: 20081222
  Receipt Date: 20080909
  Transmission Date: 20090506
  Serious: Yes (Other)
  Sender: FDA-Public Use
  Company Number: US-WYE-H05946308

PATIENT
  Age: 44 Year
  Sex: Female

DRUGS (4)
  1. PRISTIQ [Suspect]
     Dosage: 50 MG 1X PER 1 DAY, ORAL
     Route: 048
  2. RITALIN [Concomitant]
  3. GEODON [Concomitant]
  4. CLONAZEPAM [Concomitant]

REACTIONS (4)
  - ABNORMAL DREAMS [None]
  - DAYDREAMING [None]
  - HALLUCINATION [None]
  - HALLUCINATION, VISUAL [None]
